FAERS Safety Report 20086101 (Version 1)
Quarter: 2021Q4

REPORT INFORMATION
  Report Type: Spontaneous
  Country: US (occurrence: None)
  Receive Date: 20211118
  Receipt Date: 20211118
  Transmission Date: 20220303
  Serious: Yes (Hospitalization)
  Sender: FDA-Public Use
  Company Number: None

PATIENT
  Sex: Male
  Weight: 97.7 kg

DRUGS (6)
  1. CYCLOPHOSPHAMIDE [Suspect]
     Active Substance: CYCLOPHOSPHAMIDE
  2. MERCAPTOPURINE [Concomitant]
  3. CYTARABINE [Concomitant]
  4. METHOTREXATE [Concomitant]
  5. PEG-L ASPARAGINASE (PEGASPARGASE, ONCOSPAR) [Concomitant]
  6. VINCRISTINE SULFATE [Concomitant]

REACTIONS (5)
  - Abscess soft tissue [None]
  - Fluid retention [None]
  - Rhinovirus infection [None]
  - Bladder hypertrophy [None]
  - Neutropenia [None]

NARRATIVE: CASE EVENT DATE: 20211116
